FAERS Safety Report 25515190 (Version 1)
Quarter: 2025Q3

REPORT INFORMATION
  Report Type: Spontaneous
  Country: CN (occurrence: CN)
  Receive Date: 20250703
  Receipt Date: 20250703
  Transmission Date: 20251021
  Serious: Yes (Hospitalization, Other)
  Sender: RANBAXY
  Company Number: CN-SUN PHARMACEUTICAL INDUSTRIES LTD-2025R1-514765

PATIENT
  Age: 73 Year
  Sex: Male

DRUGS (6)
  1. GEMCITABINE [Suspect]
     Active Substance: GEMCITABINE
     Indication: Angiosarcoma
     Route: 042
  2. GEMCITABINE [Suspect]
     Active Substance: GEMCITABINE
     Route: 042
  3. PACLITAXEL [Suspect]
     Active Substance: PACLITAXEL
     Indication: Angiosarcoma
     Route: 042
  4. PACLITAXEL [Suspect]
     Active Substance: PACLITAXEL
     Indication: Angiosarcoma
     Route: 042
  5. IFOSFAMIDE [Suspect]
     Active Substance: IFOSFAMIDE
     Indication: Angiosarcoma
     Route: 042
  6. PIRARUBICIN [Suspect]
     Active Substance: PIRARUBICIN
     Indication: Angiosarcoma
     Route: 042

REACTIONS (3)
  - Disease progression [Unknown]
  - Pruritus [Unknown]
  - Hypoaesthesia [Unknown]
